FAERS Safety Report 10083673 (Version 1)
Quarter: 2014Q2

REPORT INFORMATION
  Report Type: Spontaneous
  Country: US (occurrence: US)
  Receive Date: 20140417
  Receipt Date: 20140417
  Transmission Date: 20141212
  Serious: No
  Sender: FDA-Public Use
  Company Number: US-PFIZER INC-2014108083

PATIENT
  Sex: Male

DRUGS (2)
  1. CHANTIX [Suspect]
     Dosage: UNK
     Dates: start: 2008, end: 2008
  2. CHANTIX [Suspect]
     Dosage: UNK
     Dates: start: 201403

REACTIONS (5)
  - Anxiety [Unknown]
  - Abnormal dreams [Unknown]
  - Flatulence [Unknown]
  - Abdominal discomfort [Unknown]
  - Hunger [Unknown]
